FAERS Safety Report 12922880 (Version 2)
Quarter: 2016Q4

REPORT INFORMATION
  Report Type: Report from Study
  Country: US (occurrence: US)
  Receive Date: 20161109
  Receipt Date: 20161109
  Transmission Date: 20170207
  Serious: Yes (Hospitalization, Other)
  Sender: FDA-Public Use
  Company Number: US-BRISTOL-MYERS SQUIBB COMPANY-BMS-2016-088600

PATIENT
  Sex: Male

DRUGS (1)
  1. NIVOLUMAB [Suspect]
     Active Substance: NIVOLUMAB
     Indication: LUNG NEOPLASM MALIGNANT
     Dosage: UNK
     Route: 042
     Dates: start: 20160211

REACTIONS (10)
  - Oedema [Unknown]
  - Cough [Not Recovered/Not Resolved]
  - Disease progression [Unknown]
  - Pneumonia [Unknown]
  - Pain [Unknown]
  - Chest pain [Unknown]
  - Insomnia [Unknown]
  - Rash [Unknown]
  - Psoriasis [Unknown]
  - Respiratory disorder [Unknown]
